FAERS Safety Report 8077045-6 (Version None)
Quarter: 2012Q1

REPORT INFORMATION
  Report Type: 
  Country: None (occurrence: None)
  Receive Date: 20120127
  Receipt Date: 20120119
  Transmission Date: 20120608
  Serious: Yes (Other)
  Sender: FDA-Public Use
  Company Number: US-PERRIGO-12US000338

PATIENT
  Age: 21 Year
  Sex: Female

DRUGS (1)
  1. MICONAZOLE NITRATE [Suspect]
     Indication: PRODUCT USED FOR UNKNOWN INDICATION
     Dosage: SINGLE
     Route: 067
     Dates: start: 20120116, end: 20120116

REACTIONS (6)
  - PRESYNCOPE [None]
  - HEADACHE [None]
  - BLOOD PRESSURE DECREASED [None]
  - PALLOR [None]
  - NAUSEA [None]
  - DIZZINESS [None]
